FAERS Safety Report 8506645-1 (Version None)
Quarter: 2012Q3

REPORT INFORMATION
  Report Type: 
  Country: None (occurrence: None)
  Receive Date: 20120712
  Receipt Date: 20120213
  Transmission Date: 20120928
  Serious: Yes (Hospitalization)
  Sender: FDA-Public Use
  Company Number: PHHO2012US001741

PATIENT
  Sex: Male
  Weight: 127.53 kg

DRUGS (4)
  1. AIN457 [Suspect]
     Indication: PSORIASIS
     Dosage: DOSE BLINDED
     Route: 058
     Dates: start: 20101004
  2. ATENOLOL [Suspect]
     Indication: HYPERTENSION
     Dosage: 150 MG, QD
     Route: 048
     Dates: start: 20100930
  3. LISINOPRIL [Suspect]
     Indication: HYPERTENSION
     Dosage: 10 MG, QD
     Route: 048
     Dates: start: 20101202
  4. TRIAMTERENE [Suspect]
     Indication: HYPERTENSION
     Dosage: 37.5 MG, QD
     Route: 048
     Dates: start: 20100929

REACTIONS (14)
  - ARRHYTHMIA [None]
  - FIBRIN D DIMER INCREASED [None]
  - PULMONARY EMBOLISM [None]
  - HYPERTENSION [None]
  - MYOCARDIAL INFARCTION [None]
  - WHITE BLOOD CELL COUNT INCREASED [None]
  - SINUS BRADYCARDIA [None]
  - SYNCOPE [None]
  - CONCOMITANT DISEASE PROGRESSION [None]
  - NAUSEA [None]
  - BUNDLE BRANCH BLOCK RIGHT [None]
  - BURSITIS [None]
  - DIZZINESS [None]
  - HAEMOGLOBIN DECREASED [None]
